FAERS Safety Report 15255196 (Version 2)
Quarter: 2018Q3

REPORT INFORMATION
  Report Type: Spontaneous
  Country: ES (occurrence: ES)
  Receive Date: 20180808
  Receipt Date: 20180813
  Transmission Date: 20181010
  Serious: Yes (Other)
  Sender: FDA-Public Use
  Company Number: ES-PFIZER INC-2018311119

PATIENT
  Age: 37 Year
  Sex: Male

DRUGS (3)
  1. SORAFENIB [Suspect]
     Active Substance: SORAFENIB
     Indication: PAPILLARY THYROID CANCER
     Dosage: 400 MG, 2X/DAY(EVERY 12 H )
     Route: 048
  2. DOXORUBICIN HCL [Suspect]
     Active Substance: DOXORUBICIN HYDROCHLORIDE
     Indication: PAPILLARY THYROID CANCER
     Dosage: 20 MG/M2, WEEKLY(FOR 8 WEEKS)
     Route: 042
  3. SORAFENIB [Suspect]
     Active Substance: SORAFENIB
     Dosage: 800 MG, DAILY
     Route: 048

REACTIONS (4)
  - Folliculitis [Recovered/Resolved]
  - Lymphopenia [Recovered/Resolved]
  - Migraine [Recovered/Resolved]
  - Mucosal inflammation [Recovered/Resolved]
